FAERS Safety Report 8761176 (Version 1)
Quarter: 2012Q4

REPORT INFORMATION
  Report Type: 
  Country: JP (occurrence: JP)
  Receive Date: 20120830
  Receipt Date: 20120830
  Transmission Date: 20130627
  Serious: Yes (Other)
  Sender: FDA-Public Use
  Company Number: JP-GILEAD-2012-0060453

PATIENT
  Age: 61 Year
  Sex: Female

DRUGS (2)
  1. HEPSERA [Suspect]
     Indication: HEPATITIS B
     Dosage: 1 DF, QD
     Route: 048
  2. ZEFIX [Concomitant]
     Indication: HEPATITIS B
     Route: 048

REACTIONS (1)
  - Renal disorder [Recovering/Resolving]
